FAERS Safety Report 4989007-3 (Version None)
Quarter: 2006Q1

REPORT INFORMATION
  Report Type: 
  Country: None (occurrence: None)
  Receive Date: 20060314
  Receipt Date: 20051118
  Transmission Date: 20060701
  Serious: Yes (Hospitalization)
  Sender: FDA-Public Use
  Company Number: 200513261BCC

PATIENT
  Age: 73 Year
  Sex: Male
  Weight: 96.1626 kg

DRUGS (8)
  1. ALEVE [Suspect]
     Indication: ARTHRALGIA
     Dosage: 440 MG, BID, ORAL
     Route: 048
     Dates: start: 20050601
  2. TOPROL-XL [Concomitant]
  3. LOTREL [Concomitant]
  4. UROXATRAL [Concomitant]
  5. VYTORIN [Concomitant]
  6. VITAMINS NOS [Concomitant]
  7. CALCIUM GLUCONATE [Concomitant]
  8. BAYER [Concomitant]

REACTIONS (2)
  - ARTHRALGIA [None]
  - RECTAL HAEMORRHAGE [None]
